FAERS Safety Report 6290183-3 (Version None)
Quarter: 2009Q3

REPORT INFORMATION
  Report Type: 
  Country: None (occurrence: None)
  Receive Date: 20090729
  Receipt Date: 20090729
  Transmission Date: 20100115
  Serious: Yes (Other)
  Sender: FDA-Public Use
  Company Number: None

PATIENT
  Sex: Female
  Weight: 158.759 kg

DRUGS (1)
  1. LAMOTRIGINE [Suspect]
     Indication: AFFECTIVE DISORDER
     Dosage: ONCE Q DAY 100 MG PO
     Route: 048
     Dates: start: 20090401, end: 20090501

REACTIONS (7)
  - BEDRIDDEN [None]
  - CONFUSIONAL STATE [None]
  - DEPRESSION [None]
  - DIZZINESS [None]
  - FALL [None]
  - PRODUCT SUBSTITUTION ISSUE [None]
  - VISUAL IMPAIRMENT [None]
